FAERS Safety Report 19157032 (Version 1)
Quarter: 2021Q2

REPORT INFORMATION
  Report Type: Spontaneous
  Country: FR (occurrence: FR)
  Receive Date: 20210420
  Receipt Date: 20210420
  Transmission Date: 20210717
  Serious: Yes (Other)
  Sender: FDA-Public Use
  Company Number: FR-ALKEM LABORATORIES LIMITED-FR-ALKEM-2021-02013

PATIENT

DRUGS (2)
  1. IRINOTECAN [Suspect]
     Active Substance: IRINOTECAN
     Indication: NEOPLASM
     Dosage: 125 MILLIGRAM/SQ. METER, QD
     Route: 042
  2. SIROLIMUS. [Suspect]
     Active Substance: SIROLIMUS
     Indication: NEOPLASM
     Dosage: 1 MG/ML, QD
     Route: 048

REACTIONS (7)
  - Hypoalbuminaemia [Unknown]
  - Drug level above therapeutic [Unknown]
  - Abdominal pain [Unknown]
  - Hypokalaemia [Unknown]
  - Hypophosphataemia [Unknown]
  - Nausea [Unknown]
  - Diarrhoea [Unknown]
